FAERS Safety Report 7762403-7 (Version None)
Quarter: 2011Q3

REPORT INFORMATION
  Report Type: 
  Country: None (occurrence: None)
  Receive Date: 20110919
  Receipt Date: 20110919
  Transmission Date: 20111222
  Serious: Yes (Other)
  Sender: FDA-Public Use
  Company Number: None

PATIENT
  Sex: Female
  Weight: 65.7716 kg

DRUGS (1)
  1. SYNTHROID [Suspect]
     Indication: HYPOTHYROIDISM
     Dosage: SYNTHROID 100MG BRAND NAME 1 TAB DAILY ORAL
     Route: 048
     Dates: start: 20050101

REACTIONS (1)
  - NO ADVERSE EVENT [None]
